FAERS Safety Report 10213758 (Version 1)
Quarter: 2014Q2

REPORT INFORMATION
  Report Type: Spontaneous
  Country: TH (occurrence: None)
  Receive Date: 20140530
  Receipt Date: 20140530
  Transmission Date: 20141212
  Serious: Yes (Death, Hospitalization)
  Sender: FDA-Public Use
  Company Number: 2014TH000638

PATIENT
  Age: 71 Year
  Sex: Male

DRUGS (2)
  1. ELIGARD [Suspect]
     Indication: PROSTATE CANCER
     Route: 058
     Dates: start: 20131219
  2. ENANTONE [Concomitant]

REACTIONS (3)
  - Loss of consciousness [None]
  - Vomiting [None]
  - Metastases to central nervous system [None]
